FAERS Safety Report 19364017 (Version 2)
Quarter: 2025Q3

REPORT INFORMATION
  Report Type: Spontaneous
  Country: EU (occurrence: EU)
  Receive Date: 20210603
  Receipt Date: 20250806
  Transmission Date: 20251021
  Serious: Yes (Hospitalization, Other)
  Sender: AUROBINDO
  Company Number: EU-EMA-DD-20210412-BANAVALLI_M-131423

PATIENT
  Age: 75 Year
  Sex: Male

DRUGS (29)
  1. ALLOPURINOL [Suspect]
     Active Substance: ALLOPURINOL
     Indication: Hyperuricaemia
     Dosage: 300 MILLIGRAM, ONCE A DAY
     Route: 065
  2. AMIODARONE [Suspect]
     Active Substance: AMIODARONE
     Indication: Ventricular tachycardia
     Dosage: 200 MILLIGRAM, ONCE A DAY
     Route: 065
  3. ATORVASTATIN [Suspect]
     Active Substance: ATORVASTATIN
     Indication: Dyslipidaemia
     Dosage: 20 MILLIGRAM, ONCE A DAY
     Route: 065
  4. BISOPROLOL [Suspect]
     Active Substance: BISOPROLOL
     Indication: Hypertension
  5. CARVEDILOL [Suspect]
     Active Substance: CARVEDILOL
     Indication: Product used for unknown indication
     Dosage: 3.13 MG/DAY DEPENDING ON BLOOD PRESSURE
  6. ENALAPRIL [Suspect]
     Active Substance: ENALAPRIL
     Indication: Cardiac failure congestive
     Dosage: 2.5 MILLIGRAM, ONCE A DAY
     Route: 065
  7. ENALAPRIL [Suspect]
     Active Substance: ENALAPRIL
     Dosage: 2.5 MILLIGRAM, ONCE A DAY
     Route: 065
  8. EPLERENONE [Suspect]
     Active Substance: EPLERENONE
     Indication: Product used for unknown indication
     Dosage: 25 MILLIGRAM, ONCE A DAY
     Route: 065
  9. EPLERENONE [Suspect]
     Active Substance: EPLERENONE
     Dosage: 50 MILLIGRAM, ONCE A DAY
  10. FUROSEMIDE [Suspect]
     Active Substance: FUROSEMIDE
     Indication: Product used for unknown indication
     Route: 042
  11. FUROSEMIDE [Suspect]
     Active Substance: FUROSEMIDE
     Dosage: 120 MILLIGRAM, ONCE A DAY
     Route: 065
  12. TAMSULOSIN [Suspect]
     Active Substance: TAMSULOSIN
     Indication: Product used for unknown indication
     Dosage: 0.4 MILLIGRAM, ONCE A DAY
     Route: 065
  13. LEVOSIMENDAN [Suspect]
     Active Substance: LEVOSIMENDAN
     Indication: Cardiac failure congestive
     Route: 065
  14. SALMETEROL [Suspect]
     Active Substance: SALMETEROL
     Indication: Chronic obstructive pulmonary disease
     Route: 065
  15. MORPHINE [Suspect]
     Active Substance: MORPHINE
     Indication: Dyspnoea
     Route: 065
  16. DIGOXIN [Suspect]
     Active Substance: DIGOXIN
     Indication: Cardiac failure congestive
     Dosage: 0.25 MILLIGRAM, ONCE A DAY
     Route: 065
  17. DIGOXIN [Suspect]
     Active Substance: DIGOXIN
     Dosage: 0.13 MILLIGRAM, ONCE A DAY
     Route: 065
  18. ALBUTEROL [Suspect]
     Active Substance: ALBUTEROL
     Indication: Dyspnoea
     Route: 065
  19. FLUTICASONE [Suspect]
     Active Substance: FLUTICASONE
     Indication: Chronic obstructive pulmonary disease
  20. TIOTROPIUM [Suspect]
     Active Substance: TIOTROPIUM
     Indication: Chronic obstructive pulmonary disease
     Dosage: 18 MILLIGRAM, ONCE A DAY
     Route: 065
  21. FLUTICASONE PROPIONATE\SALMETEROL XINAFOATE [Suspect]
     Active Substance: FLUTICASONE PROPIONATE\SALMETEROL XINAFOATE
     Indication: Dyspnoea
     Dosage: 25MCG/125MCG, 2X PER DAY
     Route: 065
  22. ACENOCOUMAROL [Suspect]
     Active Substance: ACENOCOUMAROL
     Indication: Arrhythmia
     Route: 065
  23. LEVOTHYROXINE [Suspect]
     Active Substance: LEVOTHYROXINE
     Indication: Hypothyroidism
     Dosage: 75 MICROGRAM, ONCE A DAY
     Route: 065
  24. BISOPROLOL FUMARATE [Suspect]
     Active Substance: BISOPROLOL FUMARATE
     Indication: Cardiac failure congestive
     Dosage: 1.25 MG, 2X PER DAY
     Route: 065
  25. RISPERIDONE [Concomitant]
     Active Substance: RISPERIDONE
     Indication: Product used for unknown indication
     Route: 065
  26. IPRATROPIUM [Concomitant]
     Active Substance: IPRATROPIUM
     Indication: Product used for unknown indication
     Route: 065
  27. MAGNESIUM HYDROXIDE [Concomitant]
     Active Substance: MAGNESIUM HYDROXIDE
     Indication: Product used for unknown indication
     Dosage: 2.4 GRAM, ONCE A DAY
     Route: 065
  28. OMEPRAZOLE [Concomitant]
     Active Substance: OMEPRAZOLE
     Indication: Product used for unknown indication
     Route: 065
  29. ACETAMINOPHEN [Concomitant]
     Active Substance: ACETAMINOPHEN
     Indication: Product used for unknown indication
     Route: 065

REACTIONS (5)
  - Hypothyroidism [Unknown]
  - Drug ineffective [Unknown]
  - Hypotension [Unknown]
  - Constipation [Recovering/Resolving]
  - Off label use [Unknown]
